FAERS Safety Report 9937363 (Version 2)
Quarter: 2014Q1

REPORT INFORMATION
  Report Type: Report from Study
  Country: CA (occurrence: CA)
  Receive Date: 20140303
  Receipt Date: 20140305
  Transmission Date: 20141002
  Serious: Yes (Hospitalization)
  Sender: FDA-Public Use
  Company Number: CA-ROCHE-1355566

PATIENT
  Age: 54 Year
  Sex: Male

DRUGS (11)
  1. OBINUTUZUMAB [Suspect]
     Indication: DIFFUSE LARGE B-CELL LYMPHOMA
     Dosage: DOSE CONCENTRATION OF LAST GA101 TAKEN WAS 4 MG/ML??DATE OF MOST RECENT DOSE OF GA101 PRIOR TO AE ON
     Route: 042
     Dates: start: 20131223
  2. CYCLOPHOSPHAMIDE [Suspect]
     Indication: DIFFUSE LARGE B-CELL LYMPHOMA
     Dosage: DATE OF MOST RECENT DOSE OF CYCLOPHOSPHAMIDE PRIOR TO AE ONSET WAS 07/FEB/2014
     Route: 042
     Dates: start: 20131223
  3. DOXORUBICIN [Suspect]
     Indication: DIFFUSE LARGE B-CELL LYMPHOMA
     Dosage: DATE OF MOST RECENT DOSE OF DOXORUBICIN PRIOR TO AE ONSET WAS 07/FEB/2014
     Route: 042
     Dates: start: 20131223
  4. VINCRISTINE [Suspect]
     Indication: DIFFUSE LARGE B-CELL LYMPHOMA
     Dosage: DATE OF MOST RECENT DOSE OF VINCRISTINE PRIOR TO AE ONSET WAS 07/FEB/2014
     Route: 042
     Dates: start: 20131223
  5. PREDNISONE [Suspect]
     Indication: DIFFUSE LARGE B-CELL LYMPHOMA
     Dosage: DATE OF MOST RECENT DOSE OF PREDNISONE PRIOR TO AE ONSET WAS 11/FEB/2014.
     Route: 048
     Dates: start: 20131223
  6. TYLENOL [Concomitant]
     Indication: BACK PAIN
     Route: 065
     Dates: start: 20131223
  7. OXYCODONE/ACETAMINOPHEN [Concomitant]
     Indication: BACK PAIN
  8. NEXIUM [Concomitant]
     Indication: GASTROOESOPHAGEAL REFLUX DISEASE
  9. BENADRYL (CANADA) [Concomitant]
     Route: 065
     Dates: start: 20131223
  10. GRANISETRON [Concomitant]
     Route: 065
     Dates: start: 20131223
  11. COLACE [Concomitant]
     Indication: CONSTIPATION
     Route: 065
     Dates: start: 20140205

REACTIONS (1)
  - Febrile neutropenia [Recovered/Resolved]
